FAERS Safety Report 25871113 (Version 1)
Quarter: 2025Q4

REPORT INFORMATION
  Report Type: Spontaneous
  Country: US (occurrence: US)
  Receive Date: 20251001
  Receipt Date: 20251001
  Transmission Date: 20260119
  Serious: No
  Sender: TAKEDA
  Company Number: US-TAKEDA-2025TUS083558

PATIENT
  Age: 57 Year
  Sex: Male
  Weight: 102 kg

DRUGS (1)
  1. ENTYVIO [Suspect]
     Active Substance: VEDOLIZUMAB
     Indication: Crohn^s disease
     Dosage: UNK

REACTIONS (5)
  - Glossodynia [Unknown]
  - Taste disorder [Unknown]
  - Lip swelling [Unknown]
  - Lip dry [Unknown]
  - Lip erythema [Unknown]
